FAERS Safety Report 5319705-3 (Version None)
Quarter: 2007Q2

REPORT INFORMATION
  Report Type: 
  Country: None (occurrence: None)
  Receive Date: 20070503
  Receipt Date: 20070420
  Transmission Date: 20071010
  Serious: Yes (Hospitalization, Other)
  Sender: FDA-Public Use
  Company Number: A-CH2004-08361

PATIENT
  Age: 17 Year
  Sex: Female
  Weight: 48.5 kg

DRUGS (6)
  1. ZAVESCA [Suspect]
     Indication: GAUCHER'S DISEASE
     Dosage: 100 MG, TID, ORAL
     Route: 048
     Dates: start: 20040419, end: 20040501
  2. ZAVESCA [Suspect]
     Indication: GAUCHER'S DISEASE
     Dosage: 100 MG, TID, ORAL
     Route: 048
     Dates: start: 20040501
  3. LAMICTAL [Concomitant]
  4. TOPIRAMATE [Concomitant]
  5. CLONAZEPAM [Concomitant]
  6. KEPPRA [Concomitant]

REACTIONS (8)
  - ACQUIRED CLAW TOE [None]
  - CHRONIC INFLAMMATORY DEMYELINATING POLYRADICULONEUROPATHY [None]
  - CONDITION AGGRAVATED [None]
  - DIARRHOEA [None]
  - EPILEPSY [None]
  - FLATULENCE [None]
  - GUILLAIN-BARRE SYNDROME [None]
  - JOINT SPRAIN [None]
